FAERS Safety Report 9657255 (Version 1)
Quarter: 2013Q4

REPORT INFORMATION
  Report Type: Report from Study
  Country: US (occurrence: US)
  Receive Date: 20131030
  Receipt Date: 20131030
  Transmission Date: 20140711
  Serious: Yes (Other)
  Sender: FDA-Public Use
  Company Number: US-SA-2013SA109957

PATIENT
  Sex: Male

DRUGS (1)
  1. AUBAGIO [Suspect]
     Route: 048
     Dates: start: 20130523

REACTIONS (8)
  - Muscle injury [Unknown]
  - Pain [Unknown]
  - Decreased appetite [Unknown]
  - Gait disturbance [Unknown]
  - Hypoaesthesia [Unknown]
  - Asthenia [Unknown]
  - Anaemia [Unknown]
  - Diarrhoea [Unknown]
